FAERS Safety Report 20550725 (Version 2)
Quarter: 2022Q1

REPORT INFORMATION
  Report Type: Report from Study
  Country: CH (occurrence: CH)
  Receive Date: 20220304
  Receipt Date: 20220304
  Transmission Date: 20220423
  Serious: Yes (Hospitalization)
  Sender: FDA-Public Use
  Company Number: CH-AMGEN-CHECT2022037262

PATIENT
  Age: 66 Year
  Sex: Male
  Weight: 80.6 kg

DRUGS (15)
  1. AMG-510 [Suspect]
     Active Substance: AMG-510
     Indication: K-ras gene mutation
     Dosage: 960 MILLIGRAM
     Route: 048
     Dates: start: 20220208
  2. AMG-510 [Suspect]
     Active Substance: AMG-510
     Indication: Non-small cell lung cancer stage IV
  3. METOCLOPRAMIDE HYDROCHLORIDE [Concomitant]
     Active Substance: METOCLOPRAMIDE HYDROCHLORIDE
     Dosage: 0.3 UNK
     Route: 048
     Dates: start: 202110
  4. ALUMINUM HYDROXIDE\MAGNESIUM HYDROXIDE [Concomitant]
     Active Substance: ALUMINUM HYDROXIDE\MAGNESIUM HYDROXIDE
     Dosage: 10 MILLILITER
     Route: 048
     Dates: start: 202110
  5. SODIUM PICOSULFATE [Concomitant]
     Active Substance: SODIUM PICOSULFATE
     Dosage: 0.5 UNK
     Route: 048
     Dates: start: 202110
  6. FENTANYL CITRATE [Concomitant]
     Active Substance: FENTANYL CITRATE
     Dosage: 200 MICROGRAM
     Route: 048
     Dates: start: 202110
  7. MAGALDRATE [Concomitant]
     Active Substance: MAGALDRATE
     Dosage: 800 MILLIGRAM
     Route: 048
     Dates: start: 20220119
  8. CIPRALEX [Concomitant]
     Active Substance: ESCITALOPRAM OXALATE
     Dosage: 10 MILLIGRAM
     Route: 048
     Dates: start: 202001
  9. FLATULEX [SIMETICONE] [Concomitant]
     Dosage: 42 MILLIGRAM
     Route: 048
     Dates: start: 202110
  10. KEPPRA [Concomitant]
     Active Substance: LEVETIRACETAM
     Dosage: 500 MILLIGRAM
     Route: 048
     Dates: start: 202105
  11. PREGABALIN [Concomitant]
     Active Substance: PREGABALIN
     Dosage: 100 MILLIGRAM
     Route: 048
     Dates: start: 202110
  12. POLYETHYLENE GLYCOLS [Concomitant]
     Active Substance: POLYETHYLENE GLYCOLS
     Dosage: 1 UNK
     Route: 048
     Dates: start: 202110
  13. TAMSULOSIN [Concomitant]
     Active Substance: TAMSULOSIN
     Dosage: 0.4 MILLIGRAM
     Route: 048
     Dates: start: 202110
  14. ALBUTEROL SULFATE\IPRATROPIUM BROMIDE [Concomitant]
     Active Substance: ALBUTEROL SULFATE\IPRATROPIUM BROMIDE
     Dosage: 1 UNK
     Route: 050
     Dates: start: 202110
  15. FENTANYL [Concomitant]
     Active Substance: FENTANYL
     Dosage: 50 UNK
     Route: 062
     Dates: start: 202110

REACTIONS (1)
  - Stenosis [Not Recovered/Not Resolved]

NARRATIVE: CASE EVENT DATE: 20220228
